FAERS Safety Report 10061105 (Version 2)
Quarter: 2014Q3

REPORT INFORMATION
  Report Type: Spontaneous
  Country: US (occurrence: US)
  Receive Date: 20140406
  Receipt Date: 20140905
  Transmission Date: 20150326
  Serious: Yes (Death, Hospitalization, Other)
  Sender: FDA-Public Use
  Company Number: US-009507513-1404USA003398

PATIENT
  Sex: Female
  Weight: 72.56 kg

DRUGS (5)
  1. OMEGA-3 ACIDS [Concomitant]
     Active Substance: OMEGA-3 FATTY ACIDS
     Dosage: UNK
     Dates: start: 2004, end: 20091231
  2. BIO C PLUS [Concomitant]
     Dosage: UNK
     Dates: start: 200606, end: 20090520
  3. VITAMINS (UNSPECIFIED) [Concomitant]
     Active Substance: VITAMINS
     Dosage: UNK
     Dates: start: 1990, end: 20091231
  4. NUTRILITE NATURAL B COMPLEX [Concomitant]
     Dosage: UNK
     Dates: start: 200606, end: 20090520
  5. JANUVIA [Suspect]
     Active Substance: SITAGLIPTIN PHOSPHATE
     Indication: TYPE 2 DIABETES MELLITUS
     Dosage: 100 MG, QD
     Route: 048
     Dates: start: 20070627, end: 20090409

REACTIONS (26)
  - Neurogenic bladder [Unknown]
  - Staphylococcal infection [Unknown]
  - Urinary tract infection [Unknown]
  - Stress [Unknown]
  - Joint arthroplasty [Unknown]
  - Shoulder arthroplasty [Unknown]
  - Anaphylactic reaction [Unknown]
  - Umbilical hernia repair [Unknown]
  - Anaemia [Unknown]
  - Peripheral venous disease [Unknown]
  - Anxiety [Unknown]
  - Death [Fatal]
  - Splenectomy [Unknown]
  - Renal failure [Unknown]
  - Rib fracture [Unknown]
  - Depression [Unknown]
  - Stress urinary incontinence [Unknown]
  - Pancreatectomy [Unknown]
  - Neuropathy peripheral [Unknown]
  - Fungal skin infection [Unknown]
  - Chest pain [Unknown]
  - Pancreatic carcinoma [Unknown]
  - Knee arthroplasty [Unknown]
  - Incarcerated umbilical hernia [Unknown]
  - Fear of death [Unknown]
  - Back pain [Unknown]

NARRATIVE: CASE EVENT DATE: 2007
